FAERS Safety Report 21450712 (Version 1)
Quarter: 2022Q4

REPORT INFORMATION
  Report Type: Spontaneous
  Country: IT (occurrence: IT)
  Receive Date: 20221013
  Receipt Date: 20221013
  Transmission Date: 20230113
  Serious: Yes (Hospitalization, Other)
  Sender: FDA-Public Use
  Company Number: IT-SA-2022SA412130

PATIENT
  Age: 32 Year
  Sex: Male

DRUGS (1)
  1. ALEMTUZUMAB [Suspect]
     Active Substance: ALEMTUZUMAB
     Indication: Relapsing-remitting multiple sclerosis
     Dosage: 12 MG
     Route: 042
     Dates: start: 2017

REACTIONS (5)
  - Glomerulonephritis membranous [Unknown]
  - Proteinuria [Unknown]
  - Hypoalbuminaemia [Unknown]
  - Hypercholesterolaemia [Unknown]
  - Oedema peripheral [Unknown]
